FAERS Safety Report 7812239-3 (Version None)
Quarter: 2011Q4

REPORT INFORMATION
  Report Type: 
  Country: None (occurrence: None)
  Receive Date: 20111013
  Receipt Date: 20111003
  Transmission Date: 20120403
  Serious: Yes (Hospitalization, Other)
  Sender: FDA-Public Use
  Company Number: US-BAYER-2011-007479

PATIENT
  Age: 29 Year
  Sex: Female
  Weight: 70.295 kg

DRUGS (12)
  1. NAPROSYN [Concomitant]
     Dosage: UNK
     Dates: start: 20080104, end: 20080114
  2. AMBIEN CR [Concomitant]
     Dosage: UNK
     Dates: start: 20061027, end: 20070401
  3. AMBIEN CR [Concomitant]
     Dosage: UNK
     Dates: start: 20080202, end: 20090301
  4. YAZ [Suspect]
     Indication: ACNE
  5. WELLBUTRIN [Concomitant]
     Dosage: UNK
     Dates: start: 20060622, end: 20100601
  6. KEFLEX [Concomitant]
     Dosage: 500 MG, TID
     Dates: start: 20080104
  7. ROZEREM [Concomitant]
     Dosage: UNK
     Dates: start: 20060522, end: 20100601
  8. YAZ [Suspect]
     Indication: CONTRACEPTION
     Dosage: UNK
     Dates: start: 20061027, end: 20080104
  9. PROZAC [Concomitant]
     Dosage: 20 MG, QD
     Dates: start: 20070804, end: 20090401
  10. PROZAC [Concomitant]
     Dosage: 20 MG, QD
     Dates: start: 20070313, end: 20091109
  11. AMBIEN CR [Concomitant]
     Dosage: UNK
     Dates: start: 20080728, end: 20100701
  12. MONOCYCLINE [Concomitant]
     Dosage: UNK
     Dates: start: 20080403, end: 20100701

REACTIONS (12)
  - PAIN [None]
  - EMOTIONAL DISTRESS [None]
  - DYSPNOEA [None]
  - DEEP VEIN THROMBOSIS [None]
  - VENOUS INJURY [None]
  - VENOUS INSUFFICIENCY [None]
  - INJURY [None]
  - COUGH [None]
  - PULMONARY EMBOLISM [None]
  - PAIN IN EXTREMITY [None]
  - ANXIETY [None]
  - ARTHRALGIA [None]
